FAERS Safety Report 11261574 (Version 2)
Quarter: 2015Q3

REPORT INFORMATION
  Report Type: Other
  Country: GB (occurrence: GB)
  Receive Date: 20150710
  Receipt Date: 20150804
  Transmission Date: 20151125
  Serious: Yes (Hospitalization, Other)
  Sender: FDA-Public Use
  Company Number: GB-SHIRE-GB201507548

PATIENT
  Sex: Female

DRUGS (2)
  1. VPRIV [Suspect]
     Active Substance: VELAGLUCERASE ALFA
     Indication: GAUCHER^S DISEASE
     Dosage: 800 IU, 1X/WEEK
     Route: 041
  2. VPRIV [Suspect]
     Active Substance: VELAGLUCERASE ALFA
     Dosage: 800 IU, 1X/2WKS
     Route: 041

REACTIONS (4)
  - Hospitalisation [Unknown]
  - Inappropriate schedule of drug administration [Recovered/Resolved]
  - Malaise [Unknown]
  - Pain [Unknown]
